FAERS Safety Report 4951299-4 (Version None)
Quarter: 2006Q1

REPORT INFORMATION
  Report Type: 
  Country: None (occurrence: None)
  Receive Date: 20060323
  Receipt Date: 20060314
  Transmission Date: 20060701
  Serious: Yes (Hospitalization)
  Sender: FDA-Public Use
  Company Number: 2006CG00493

PATIENT
  Age: 70 Year
  Sex: Female

DRUGS (3)
  1. NEXIUM [Suspect]
     Route: 048
     Dates: start: 20060109, end: 20060114
  2. CIFLOX [Concomitant]
     Route: 042
     Dates: start: 20060101, end: 20060109
  3. ROCEPHIN [Concomitant]
     Route: 042
     Dates: start: 20051223, end: 20060109

REACTIONS (1)
  - NEUTROPENIA [None]
